FAERS Safety Report 12074143 (Version 2)
Quarter: 2016Q1

REPORT INFORMATION
  Report Type: Spontaneous
  Country: US (occurrence: US)
  Receive Date: 20160212
  Receipt Date: 20160212
  Transmission Date: 20160526
  Serious: No
  Sender: FDA-Public Use
  Company Number: US-TAKEDA-2016TUS002252

PATIENT
  Age: 24 Year
  Sex: Male
  Weight: 64.86 kg

DRUGS (8)
  1. PREVACID [Suspect]
     Active Substance: LANSOPRAZOLE
     Indication: HELICOBACTER INFECTION
     Dosage: 40 MG, BID
     Route: 065
     Dates: start: 201502, end: 201502
  2. XIFAXAN [Suspect]
     Active Substance: RIFAXIMIN
     Indication: GASTROINTESTINAL BACTERIAL INFECTION
     Dosage: 550 MG, BID
     Route: 048
     Dates: start: 201506, end: 201506
  3. DIFLUCAN [Suspect]
     Active Substance: FLUCONAZOLE
     Indication: FUNGAL INFECTION
     Dosage: UNK
     Route: 065
     Dates: start: 201506, end: 201506
  4. NEXIUM [Suspect]
     Active Substance: ESOMEPRAZOLE MAGNESIUM
     Indication: OESOPHAGITIS
     Dosage: 40 MG, UNK
     Route: 065
     Dates: start: 201505
  5. CLINDAMYCIN [Suspect]
     Active Substance: CLINDAMYCIN\CLINDAMYCIN PHOSPHATE
     Indication: HELICOBACTER INFECTION
     Dosage: UNK
     Route: 065
     Dates: start: 201502, end: 201502
  6. FLAGYL [Suspect]
     Active Substance: METRONIDAZOLE\METRONIDAZOLE HYDROCHLORIDE
     Indication: GASTROINTESTINAL BACTERIAL INFECTION
     Dosage: 500 MG, TID
     Route: 048
     Dates: start: 20150901, end: 20150905
  7. PRILOSEC [Suspect]
     Active Substance: OMEPRAZOLE MAGNESIUM
     Indication: OESOPHAGITIS
     Dosage: 40 MG, UNK
     Route: 065
     Dates: start: 201505, end: 201505
  8. AMOXICILLIN. [Suspect]
     Active Substance: AMOXICILLIN
     Indication: HELICOBACTER INFECTION
     Dosage: UNK
     Route: 065
     Dates: start: 201502

REACTIONS (13)
  - Pain [Recovering/Resolving]
  - Food intolerance [Recovering/Resolving]
  - Eructation [Recovering/Resolving]
  - Dyspepsia [Recovering/Resolving]
  - Tremor [Recovered/Resolved]
  - Vertigo [Recovered/Resolved]
  - Abnormal faeces [Recovering/Resolving]
  - Food allergy [Recovering/Resolving]
  - Flatulence [Recovering/Resolving]
  - Disturbance in attention [Recovering/Resolving]
  - Oral fungal infection [Recovered/Resolved]
  - Gastrointestinal bacterial infection [Recovering/Resolving]
  - Visual impairment [Recovered/Resolved]

NARRATIVE: CASE EVENT DATE: 201505
